FAERS Safety Report 9303211 (Version 3)
Quarter: 2013Q3

REPORT INFORMATION
  Report Type: Spontaneous
  Country: US (occurrence: None)
  Receive Date: 20130517
  Receipt Date: 20130701
  Transmission Date: 20140515
  Serious: Yes (Disabling, Other)
  Sender: FDA-Public Use
  Company Number: ACO_36099_2013

PATIENT
  Age: 75 Year
  Sex: Female

DRUGS (5)
  1. AMPYRA [Suspect]
     Indication: GAIT DISTURBANCE
     Route: 048
  2. AMPYRA [Suspect]
     Indication: PARKINSON^S DISEASE
     Route: 048
  3. PLACEBO [Suspect]
     Indication: GAIT DISTURBANCE
  4. CABIDOPA /LEVODOPA (CARBIDOPA, LEVODOPA [Concomitant]
  5. NEUPRO (ROTIGOTINE) [Concomitant]

REACTIONS (2)
  - Fatigue [None]
  - Dysstasia [None]
